APPROVED DRUG PRODUCT: EDARAVONE
Active Ingredient: EDARAVONE
Strength: 30MG/100ML (0.3MG/ML)
Dosage Form/Route: SOLUTION;INTRAVENOUS
Application: A217565 | Product #001 | TE Code: AP
Applicant: PHARMOBEDIENT CONSULTING LLC
Approved: Oct 31, 2024 | RLD: No | RS: No | Type: RX